FAERS Safety Report 19159881 (Version 3)
Quarter: 2022Q2

REPORT INFORMATION
  Report Type: Spontaneous
  Country: US (occurrence: US)
  Receive Date: 20210421
  Receipt Date: 20220415
  Transmission Date: 20220720
  Serious: No
  Sender: FDA-Public Use
  Company Number: US-TOLMAR, INC.-21US026342

PATIENT
  Age: 11 Year
  Sex: Female
  Weight: 49.887 kg

DRUGS (2)
  1. FENSOLVI [Suspect]
     Active Substance: LEUPROLIDE ACETATE
     Indication: Precocious puberty
     Dosage: 45 MILLIGRAM, Q 6 MONTH
     Dates: start: 20200924
  2. SYNERA [Concomitant]
     Active Substance: LIDOCAINE\TETRACAINE
     Indication: Local anaesthesia
     Dosage: UNK
     Dates: start: 20200924

REACTIONS (4)
  - Wrong technique in product usage process [Unknown]
  - Product administration error [Unknown]
  - Syringe issue [Unknown]
  - Drug ineffective [Not Recovered/Not Resolved]

NARRATIVE: CASE EVENT DATE: 20200924
